FAERS Safety Report 9266855 (Version 2)
Quarter: 2013Q2

REPORT INFORMATION
  Report Type: Spontaneous
  Country: JP (occurrence: JP)
  Receive Date: 20130502
  Receipt Date: 20130514
  Transmission Date: 20140414
  Serious: Yes (Other)
  Sender: FDA-Public Use
  Company Number: JP-VERTEX PHARMACEUTICALS INC-2013-005593

PATIENT
  Age: 39 Year
  Sex: Female

DRUGS (5)
  1. TELAVIC [Suspect]
     Indication: CHRONIC HEPATITIS C
     Dosage: 1500 MG, QD
     Route: 048
     Dates: start: 20130423, end: 20130424
  2. RIBAVIRIN [Suspect]
     Indication: CHRONIC HEPATITIS C
     Dosage: 600 MG, QD
     Route: 048
     Dates: start: 20130423, end: 20130424
  3. PEGINTRON [Suspect]
     Indication: CHRONIC HEPATITIS C
     Dosage: 1.0 ?G/KG
     Route: 058
     Dates: start: 20130423, end: 20130424
  4. TEGRETOL [Concomitant]
     Dosage: 200 MG, QD
     Route: 048
  5. LAMICTAL [Concomitant]
     Dosage: 50 MG, QD
     Route: 048

REACTIONS (1)
  - Epilepsy [Recovered/Resolved]
